FAERS Safety Report 7380031-2 (Version None)
Quarter: 2011Q1

REPORT INFORMATION
  Report Type: 
  Country: None (occurrence: None)
  Receive Date: 20110329
  Receipt Date: 20110322
  Transmission Date: 20110831
  Serious: Yes (Death, Other)
  Sender: FDA-Public Use
  Company Number: BR-BRISTOL-MYERS SQUIBB COMPANY-15628316

PATIENT
  Age: 55 Year
  Sex: Male

DRUGS (3)
  1. LISODREN TABS 500 MG [Suspect]
     Indication: ADRENAL CARCINOMA
     Dosage: 2 TABS OF 500MG
     Route: 048
  2. METICORTEN [Suspect]
  3. FLORINEF [Suspect]

REACTIONS (1)
  - RESPIRATORY FAILURE [None]
